FAERS Safety Report 4931672-0 (Version None)
Quarter: 2006Q1

REPORT INFORMATION
  Report Type: 
  Country: None (occurrence: None)
  Receive Date: 20060303
  Receipt Date: 20060104
  Transmission Date: 20060701
  Serious: Yes (Other)
  Sender: FDA-Public Use
  Company Number: US-BRISTOL-MYERS SQUIBB COMPANY-13236294

PATIENT
  Age: 59 Year
  Sex: Male
  Weight: 83 kg

DRUGS (5)
  1. ERBITUX [Suspect]
     Indication: NEOPLASM MALIGNANT
     Route: 042
     Dates: start: 20051219, end: 20051219
  2. TYLENOL (CAPLET) [Concomitant]
     Indication: PREMEDICATION
  3. BENADRYL [Concomitant]
     Indication: PREMEDICATION
  4. LORTAB [Concomitant]
  5. PEPCID [Concomitant]

REACTIONS (1)
  - INFUSION RELATED REACTION [None]
